FAERS Safety Report 21777274 (Version 1)
Quarter: 2022Q4

REPORT INFORMATION
  Report Type: Spontaneous
  Country: US (occurrence: US)
  Receive Date: 20221226
  Receipt Date: 20221226
  Transmission Date: 20230112
  Serious: No
  Sender: FDA-Public Use
  Company Number: US-MIGRATION_PFIZER-2022BHV002823

PATIENT
  Sex: Female

DRUGS (1)
  1. NURTEC ODT [Suspect]
     Active Substance: RIMEGEPANT SULFATE
     Indication: Migraine
     Dosage: CALLER TOOK 2 ODTS TODAY?CHECKED ONLINE AND SAW I WAS ONLY SUPPOSED TO TAKE 1 TABLET IN 24 HOURS
     Route: 048
     Dates: start: 20221011

REACTIONS (2)
  - Incorrect dose administered [Unknown]
  - Nausea [Unknown]
